FAERS Safety Report 17611649 (Version 1)
Quarter: 2020Q2

REPORT INFORMATION
  Report Type: Spontaneous
  Country: US (occurrence: US)
  Receive Date: 20200401
  Receipt Date: 20200401
  Transmission Date: 20200713
  Serious: Yes (Other)
  Sender: FDA-Public Use
  Company Number: US-BAYER-2020-011537

PATIENT
  Age: 61 Year
  Sex: Female

DRUGS (17)
  1. ENALAPRIL [Concomitant]
     Active Substance: ENALAPRIL
     Dosage: 20 MG, QD
     Route: 048
  2. FAMOTIDINE. [Concomitant]
     Active Substance: FAMOTIDINE
     Dosage: 20 MG, QD
     Route: 048
  3. HYDROCHLOROTHIAZIDE. [Concomitant]
     Active Substance: HYDROCHLOROTHIAZIDE
     Indication: BLOOD PRESSURE MEASUREMENT
     Dosage: 25 MG, QD
     Route: 048
  4. METOPROLOL TARTRATE. [Concomitant]
     Active Substance: METOPROLOL TARTRATE
     Dosage: 100 MG, QD
     Route: 048
  5. ATORVASTATIN [Concomitant]
     Active Substance: ATORVASTATIN
     Dosage: 80 MG, QD
     Route: 048
  6. PLETAL [Concomitant]
     Active Substance: CILOSTAZOL
     Dosage: 100 MG, BID
     Route: 048
  7. METFORMIN [Concomitant]
     Active Substance: METFORMIN HYDROCHLORIDE
     Dosage: UNK
     Route: 048
  8. ISOSORBIDE MONONITRATE. [Concomitant]
     Active Substance: ISOSORBIDE MONONITRATE
     Dosage: UNK
     Route: 048
  9. BAYER LOW DOSE [Suspect]
     Active Substance: ASPIRIN
     Dosage: 81 MG, UNK
     Route: 048
  10. NOVOLOG [Concomitant]
     Active Substance: INSULIN ASPART
     Dosage: 8 IU, UNK
     Route: 058
  11. OXYCODONE [Concomitant]
     Active Substance: OXYCODONE
     Indication: PAIN
     Dosage: 1-2 TABLET BY MOUTH THREE TIMES A DAY
     Route: 048
  12. XARELTO [Suspect]
     Active Substance: RIVAROXABAN
     Indication: PRODUCT USED FOR UNKNOWN INDICATION
     Dosage: 20 MG, UNK
     Route: 048
  13. GABAPENTIN. [Concomitant]
     Active Substance: GABAPENTIN
     Dosage: 300 MG, TID
     Route: 048
  14. NITROGLYCERIN. [Concomitant]
     Active Substance: NITROGLYCERIN
     Dosage: UNK
     Route: 060
  15. COLACE [Concomitant]
     Active Substance: DOCUSATE SODIUM
     Dosage: 300 MG, QD
     Route: 048
  16. INSULIN GLARGINE [Concomitant]
     Active Substance: INSULIN GLARGINE
     Dosage: 14 IU, QD
     Route: 058
  17. FERROUS SULFATE. [Concomitant]
     Active Substance: FERROUS SULFATE
     Dosage: 325 MG, BID
     Route: 048

REACTIONS (2)
  - Surgery [Not Recovered/Not Resolved]
  - Injury [Unknown]

NARRATIVE: CASE EVENT DATE: 202001
